FAERS Safety Report 4290618-1 (Version None)
Quarter: 2004Q1

REPORT INFORMATION
  Report Type: 
  Country: None (occurrence: None)
  Receive Date: 20040209
  Receipt Date: 20040129
  Transmission Date: 20041129
  Serious: Yes (Other)
  Sender: FDA-Public Use
  Company Number: 2004-01-1823

PATIENT
  Age: 69 Year
  Sex: Female

DRUGS (1)
  1. NARINE COATED TABLETS LIKE CLARITIN-D 12 [Suspect]
     Indication: NASOPHARYNGITIS
     Dosage: 2 TABS QD ORAL
     Route: 048
     Dates: start: 20031230, end: 20040102

REACTIONS (2)
  - CONDITION AGGRAVATED [None]
  - LUNG NEOPLASM [None]
